FAERS Safety Report 5953970-4 (Version None)
Quarter: 2008Q4

REPORT INFORMATION
  Report Type: 
  Country: None (occurrence: None)
  Receive Date: 20081114
  Receipt Date: 20081107
  Transmission Date: 20090506
  Serious: Yes (Hospitalization)
  Sender: FDA-Public Use
  Company Number: US-GENENTECH-269836

PATIENT
  Sex: Male
  Weight: 82.54 kg

DRUGS (5)
  1. BEVACIZUMAB [Suspect]
     Indication: HEAD AND NECK CANCER
     Dosage: 15 MG/KG, UNK
     Dates: start: 20080721
  2. PACLITAXEL [Suspect]
     Indication: HEAD AND NECK CANCER
     Dosage: 200 MG/M2, DAYS 1+22
     Dates: start: 20080721
  3. PACLITAXEL [Suspect]
     Dosage: 50 MG/M2, UNK
     Dates: start: 20080721
  4. CARBOPLATIN [Suspect]
     Indication: HEAD AND NECK CANCER
     Dosage: 6 AUC, DAYS 1+22
     Dates: start: 20080721
  5. FLUOROURACIL [Suspect]
     Indication: HEAD AND NECK CANCER
     Dosage: 200 MG/M2, UNK
     Dates: start: 20080721

REACTIONS (1)
  - MUCOSAL INFLAMMATION [None]
